FAERS Safety Report 16342557 (Version 4)
Quarter: 2019Q3

REPORT INFORMATION
  Report Type: Report from Study
  Country: AR (occurrence: AR)
  Receive Date: 20190522
  Receipt Date: 20190809
  Transmission Date: 20191004
  Serious: Yes (Other)
  Sender: FDA-Public Use
  Company Number: AR-ACTELION-A-CH2019-190624

PATIENT
  Sex: Female
  Weight: 41 kg

DRUGS (11)
  1. OPSUMIT [Suspect]
     Active Substance: MACITENTAN
     Dosage: UNK
     Route: 048
  2. TREPROSTINIL. [Concomitant]
     Active Substance: TREPROSTINIL
  3. SILDENAFIL. [Concomitant]
     Active Substance: SILDENAFIL
  4. DIGOXIN. [Concomitant]
     Active Substance: DIGOXIN
  5. OPSUMIT [Suspect]
     Active Substance: MACITENTAN
     Indication: PULMONARY ARTERIAL HYPERTENSION
     Dosage: 10 MG, QD
     Route: 048
     Dates: start: 201810
  6. ROSUVASTATINE [Concomitant]
     Active Substance: ROSUVASTATIN
  7. SPIRONOLACTONE. [Concomitant]
     Active Substance: SPIRONOLACTONE
  8. CARVEDILOL. [Concomitant]
     Active Substance: CARVEDILOL
  9. ACENOCUMAROL [Concomitant]
     Active Substance: ACENOCOUMAROL
  10. FUROSEMIDE. [Concomitant]
     Active Substance: FUROSEMIDE
  11. OXYGEN. [Concomitant]
     Active Substance: OXYGEN

REACTIONS (9)
  - Concomitant disease aggravated [Not Recovered/Not Resolved]
  - Blood iron decreased [Recovering/Resolving]
  - Blood folate decreased [Recovering/Resolving]
  - Epistaxis [Recovering/Resolving]
  - Vitamin B1 decreased [Recovering/Resolving]
  - Anaemia [Recovering/Resolving]
  - Asthenia [Not Recovered/Not Resolved]
  - Transfusion [Unknown]
  - Intentional product use issue [Unknown]
